FAERS Safety Report 6234821-X (Version None)
Quarter: 2009Q2

REPORT INFORMATION
  Report Type: 
  Country: None (occurrence: None)
  Receive Date: 20090615
  Receipt Date: 20090422
  Transmission Date: 20091009
  Serious: No
  Sender: FDA-Public Use
  Company Number: DSA_33552_2009

PATIENT
  Sex: Female

DRUGS (7)
  1. XENAZINE [Suspect]
     Indication: MOVEMENT DISORDER
     Dosage: 12.5 MG TID
     Dates: start: 20090403, end: 20090407
  2. FLOMAX [Concomitant]
  3. LEXAPRO [Concomitant]
  4. LIPITOR [Concomitant]
  5. PROPRANOLOL HYDROCHLORIDE [Concomitant]
  6. AMBIEN [Concomitant]
  7. TRAZODONE [Concomitant]

REACTIONS (5)
  - AGITATION [None]
  - DEPRESSION [None]
  - DISTURBANCE IN ATTENTION [None]
  - INSOMNIA [None]
  - SYNCOPE [None]
